FAERS Safety Report 9929512 (Version 1)
Quarter: 2014Q1

REPORT INFORMATION
  Report Type: Spontaneous
  Country: ES (occurrence: ES)
  Receive Date: 20140227
  Receipt Date: 20140227
  Transmission Date: 20141002
  Serious: Yes (Other)
  Sender: FDA-Public Use
  Company Number: ES-GLAXOSMITHKLINE-B0972232A

PATIENT
  Age: 40 Year
  Sex: Male

DRUGS (3)
  1. LAMICTAL [Suspect]
     Indication: PRODUCT USED FOR UNKNOWN INDICATION
     Dosage: 100MG TWICE PER DAY
     Route: 048
     Dates: start: 20130801, end: 20140205
  2. ALGIDOL [Suspect]
     Dosage: .5UNIT THREE TIMES PER DAY
     Route: 048
     Dates: start: 20140202, end: 20140205
  3. CLOBAZAM [Concomitant]
     Dates: start: 201311

REACTIONS (2)
  - Convulsion [Recovered/Resolved]
  - Drug interaction [Unknown]
